FAERS Safety Report 25584193 (Version 4)
Quarter: 2025Q3

REPORT INFORMATION
  Report Type: Spontaneous
  Country: US (occurrence: US)
  Receive Date: 20250721
  Receipt Date: 20250911
  Transmission Date: 20251020
  Serious: No
  Sender: BRISTOL-MYERS SQUIBB COMPANY
  Company Number: US-BRISTOL-MYERS SQUIBB COMPANY-2025-101167

PATIENT
  Age: 78 Year
  Sex: Female

DRUGS (4)
  1. ORENCIA [Suspect]
     Active Substance: ABATACEPT
     Indication: Rheumatoid arthritis
     Dosage: CODE UNIT: 125 MG/ML EVERY 7 DAYS
     Dates: start: 202302
  2. ORENCIA [Suspect]
     Active Substance: ABATACEPT
     Dates: start: 202302
  3. ORENCIA [Suspect]
     Active Substance: ABATACEPT
     Dates: start: 202302
  4. ORENCIA [Suspect]
     Active Substance: ABATACEPT
     Dates: start: 202302

REACTIONS (5)
  - Heart rate increased [Unknown]
  - Mental status changes [Unknown]
  - Joint swelling [Unknown]
  - Arthralgia [Unknown]
  - Pain [Unknown]

NARRATIVE: CASE EVENT DATE: 20250701
